FAERS Safety Report 8972739 (Version 2)
Quarter: 2013Q1

REPORT INFORMATION
  Report Type: Spontaneous
  Country: GB (occurrence: None)
  Receive Date: 20121207
  Receipt Date: 20121221
  Transmission Date: 20140127
  Serious: Yes (Other)
  Sender: FDA-Public Use
  Company Number: AUR-APL-2012-05167

PATIENT
  Age: 44 Year
  Sex: Female

DRUGS (3)
  1. RISPERIDONE (RISPERIDONE) [Suspect]
     Indication: MANIA
     Route: 048
     Dates: start: 201105, end: 201110
  2. RISPERDAL [Suspect]
     Indication: MANIA
     Route: 030
     Dates: start: 201011, end: 201103
  3. LITHIUM CARBONATE (LITHIUM CARBONATE) [Concomitant]

REACTIONS (4)
  - Breast engorgement [None]
  - Galactorrhoea [None]
  - Blood prolactin increased [None]
  - Malaise [None]
